FAERS Safety Report 26055211 (Version 2)
Quarter: 2025Q4

REPORT INFORMATION
  Report Type: Spontaneous
  Country: US (occurrence: US)
  Receive Date: 20251117
  Receipt Date: 20251228
  Transmission Date: 20260117
  Serious: No
  Sender: GALDERMA
  Company Number: US-GALDERMA-US2025022885

PATIENT

DRUGS (1)
  1. NEMLUVIO [Suspect]
     Active Substance: NEMOLIZUMAB-ILTO
     Indication: Neurodermatitis
     Dosage: UNK
     Route: 058

REACTIONS (1)
  - Arthralgia [Unknown]
